FAERS Safety Report 4963296-3 (Version None)
Quarter: 2006Q2

REPORT INFORMATION
  Report Type: 
  Country: None (occurrence: None)
  Receive Date: 20060404
  Receipt Date: 20060404
  Transmission Date: 20061013
  Serious: Yes (Hospitalization)
  Sender: FDA-Public Use
  Company Number: None

PATIENT
  Age: 74 Year
  Sex: Male
  Weight: 102.2 kg

DRUGS (1)
  1. RITUXIMAB    UNKNOWN       UNKNOWN [Suspect]
     Indication: LEUKAEMIA
     Dosage: 800 MG    ONCE    IV
     Route: 042
     Dates: start: 20051018, end: 20051018

REACTIONS (2)
  - BRADYCARDIA [None]
  - HYPOTENSION [None]
